FAERS Safety Report 23649489 (Version 2)
Quarter: 2024Q2

REPORT INFORMATION
  Report Type: Spontaneous
  Country: FI (occurrence: FI)
  Receive Date: 20240319
  Receipt Date: 20240409
  Transmission Date: 20240716
  Serious: Yes (Life-Threatening, Hospitalization)
  Sender: FDA-Public Use
  Company Number: None

PATIENT
  Age: 44 Year
  Sex: Male

DRUGS (5)
  1. OLANZAPINE [Suspect]
     Active Substance: OLANZAPINE
     Indication: Bipolar disorder
     Dosage: 5 MILLIGRAM, QD (5 MG DAILY)
     Route: 048
     Dates: start: 2014
  2. OLANZAPINE [Suspect]
     Active Substance: OLANZAPINE
     Dosage: UNK UNK, UNKNOWN
     Route: 048
     Dates: start: 202401
  3. OLANZAPINE [Suspect]
     Active Substance: OLANZAPINE
     Dosage: 12.5 MILLIGRAM (5 MG + 2.5 MG + 5 MG)
     Route: 048
     Dates: start: 20240216, end: 20240225
  4. OLANZAPINE [Suspect]
     Active Substance: OLANZAPINE
     Dosage: 10 MILLIGRAM (2.5 MG + 2.5 MG + 5 MG)
     Route: 048
     Dates: start: 20240226, end: 20240227
  5. OLANZAPINE [Suspect]
     Active Substance: OLANZAPINE
     Dosage: 7.5 MILLIGRAM (2.5 MG + 5 MG)
     Route: 048
     Dates: start: 20240228

REACTIONS (4)
  - Decreased activity [Recovering/Resolving]
  - Neuroleptic malignant syndrome [Recovering/Resolving]
  - Pneumonia aspiration [Recovering/Resolving]
  - Rhabdomyolysis [Recovering/Resolving]

NARRATIVE: CASE EVENT DATE: 20240101
